FAERS Safety Report 23846204 (Version 2)
Quarter: 2024Q2

REPORT INFORMATION
  Report Type: Spontaneous
  Country: JP (occurrence: JP)
  Receive Date: 20240512
  Receipt Date: 20240520
  Transmission Date: 20240715
  Serious: Yes (Other)
  Sender: FDA-Public Use
  Company Number: JP-GSKJP-JP2024JPN049582AA

PATIENT

DRUGS (1)
  1. DAPRODUSTAT [Suspect]
     Active Substance: DAPRODUSTAT
     Indication: Nephrogenic anaemia
     Dosage: 2 MG
     Route: 048
     Dates: start: 20240312, end: 20240412

REACTIONS (4)
  - Altered state of consciousness [Recovering/Resolving]
  - Feeling jittery [Recovered/Resolved]
  - Coronavirus infection [Unknown]
  - Dehydration [Unknown]

NARRATIVE: CASE EVENT DATE: 20240412
